FAERS Safety Report 9658851 (Version 6)
Quarter: 2014Q4

REPORT INFORMATION
  Report Type: Report from Study
  Country: DE (occurrence: DE)
  Receive Date: 20131030
  Receipt Date: 20141225
  Transmission Date: 20150529
  Serious: Yes (Other)
  Sender: FDA-Public Use
  Company Number: DE-ROCHE-1295528

PATIENT

DRUGS (1)
  1. VEMURAFENIB [Suspect]
     Active Substance: VEMURAFENIB
     Indication: METASTATIC MALIGNANT MELANOMA
     Route: 065

REACTIONS (1)
  - CD4 lymphocytes decreased [Unknown]
